FAERS Safety Report 15308122 (Version 4)
Quarter: 2018Q4

REPORT INFORMATION
  Report Type: Spontaneous
  Country: BM (occurrence: BM)
  Receive Date: 20180822
  Receipt Date: 20181005
  Transmission Date: 20190204
  Serious: Yes (Other)
  Sender: FDA-Public Use
  Company Number: BM-009507513-1808BMU009105

PATIENT
  Age: 45 Year
  Sex: Male

DRUGS (3)
  1. FLUPENTIXOL [Suspect]
     Active Substance: FLUPENTIXOL
     Dosage: 6 MG, BID
     Route: 048
  2. JANUVIA [Suspect]
     Active Substance: SITAGLIPTIN PHOSPHATE
     Indication: DIABETES MELLITUS
     Dosage: 100 MG, DAILY
     Route: 048
     Dates: start: 20171003, end: 20180710
  3. GLUCOPHAGE [Concomitant]
     Active Substance: METFORMIN HYDROCHLORIDE
     Dosage: 500 MG, UNK
     Route: 048
     Dates: start: 201707, end: 201807

REACTIONS (2)
  - Product prescribing error [Unknown]
  - Blood creatine phosphokinase increased [Recovering/Resolving]

NARRATIVE: CASE EVENT DATE: 20180702
